FAERS Safety Report 22043461 (Version 1)
Quarter: 2023Q1

REPORT INFORMATION
  Report Type: Spontaneous
  Country: GB (occurrence: GB)
  Receive Date: 20230228
  Receipt Date: 20230228
  Transmission Date: 20230418
  Serious: Yes (Other)
  Sender: FDA-Public Use
  Company Number: GB-SA-SAC20230227000552

PATIENT
  Age: 19 Year
  Sex: Male

DRUGS (1)
  1. DUPILUMAB [Suspect]
     Active Substance: DUPILUMAB
     Indication: Dermatitis atopic
     Dosage: UNK
     Route: 058

REACTIONS (12)
  - Punctate keratitis [Unknown]
  - Conjunctival hyperaemia [Unknown]
  - Corneal disorder [Unknown]
  - Conjunctival papillae [Unknown]
  - Dermatitis atopic [Unknown]
  - Meibomian gland dysfunction [Unknown]
  - Eyelid margin crusting [Unknown]
  - Keratitis [Unknown]
  - Eczema [Unknown]
  - Conjunctivitis allergic [Recovering/Resolving]
  - Ocular hyperaemia [Unknown]
  - Conjunctivitis [Not Recovered/Not Resolved]
